FAERS Safety Report 14478193 (Version 1)
Quarter: 2018Q1

REPORT INFORMATION
  Report Type: Report from Study
  Country: None (occurrence: CA)
  Receive Date: 20180202
  Receipt Date: 20180202
  Transmission Date: 20180509
  Serious: Yes (Hospitalization, Other)
  Sender: FDA-Public Use
  Company Number: CA-ABBVIE-17K-028-2191290-00

PATIENT
  Age: 51 Year
  Sex: Female

DRUGS (1)
  1. HUMIRA [Suspect]
     Active Substance: ADALIMUMAB
     Indication: CROHN^S DISEASE
     Route: 058
     Dates: start: 20171014

REACTIONS (5)
  - Chest pain [Unknown]
  - Drug ineffective [Unknown]
  - Blood iron abnormal [Not Recovered/Not Resolved]
  - Depression [Unknown]
  - Strangulated hernia [Unknown]

NARRATIVE: CASE EVENT DATE: 2017
